FAERS Safety Report 4799993-2 (Version None)
Quarter: 2005Q4

REPORT INFORMATION
  Report Type: 
  Country: None (occurrence: None)
  Receive Date: 20051013
  Receipt Date: 20051013
  Transmission Date: 20060501
  Serious: No
  Sender: FDA-Public Use
  Company Number: None

PATIENT
  Sex: Female
  Weight: 63.5036 kg

DRUGS (2)
  1. DEPO-PROVERA [Suspect]
     Indication: CONTRACEPTION
     Dosage: NORMAL AMOUNT 5 TIMES PER YEAR
     Dates: start: 19961201, end: 20050401
  2. DEPO-PROVERA [Suspect]
     Indication: MIGRAINE
     Dosage: NORMAL AMOUNT 5 TIMES PER YEAR
     Dates: start: 19961201, end: 20050401

REACTIONS (6)
  - AMENORRHOEA [None]
  - BONE DENSITY DECREASED [None]
  - INCORRECT DOSE ADMINISTERED [None]
  - OSTEOPENIA [None]
  - OSTEOPOROSIS [None]
  - STRESS [None]
